FAERS Safety Report 21881574 (Version 1)
Quarter: 2023Q1

REPORT INFORMATION
  Report Type: Spontaneous
  Country: CA (occurrence: CA)
  Receive Date: 20230119
  Receipt Date: 20230119
  Transmission Date: 20230418
  Serious: Yes (Hospitalization, Other)
  Sender: FDA-Public Use
  Company Number: CA-NOVOPROD-1011722

PATIENT
  Age: 73 Year
  Sex: Male
  Weight: 136 kg

DRUGS (2)
  1. OZEMPIC [Suspect]
     Active Substance: SEMAGLUTIDE
     Indication: Weight control
     Dosage: DOSE INCREASED AS PER THE BOOK
  2. OZEMPIC [Suspect]
     Active Substance: SEMAGLUTIDE
     Indication: Diabetes mellitus
     Dosage: STARTED WITH THE LOWEST DOSE

REACTIONS (2)
  - Biliary obstruction [Recovered/Resolved]
  - Blood glucose increased [Unknown]
